FAERS Safety Report 9763605 (Version 1)
Quarter: 2013Q4

REPORT INFORMATION
  Report Type: Spontaneous
  Country: US (occurrence: US)
  Receive Date: 20131216
  Receipt Date: 20131216
  Transmission Date: 20140711
  Serious: No
  Sender: FDA-Public Use
  Company Number: US-BIOGENIDEC-2013BI104892

PATIENT
  Sex: Female

DRUGS (4)
  1. TECFIDERA [Suspect]
     Indication: MULTIPLE SCLEROSIS
     Dates: start: 2013
  2. METROGEL [Concomitant]
  3. CALCIUM CITRATE + D [Concomitant]
  4. NAPROXEN SODIUM [Concomitant]

REACTIONS (2)
  - Flushing [Unknown]
  - Abdominal discomfort [Unknown]
